FAERS Safety Report 9154201 (Version 1)
Quarter: 2013Q1

REPORT INFORMATION
  Report Type: Spontaneous
  Country: US (occurrence: None)
  Receive Date: 20130306
  Receipt Date: 20130306
  Transmission Date: 20140127
  Serious: No
  Sender: FDA-Public Use
  Company Number: None

PATIENT
  Age: 57 Year
  Sex: Female
  Weight: 74.84 kg

DRUGS (1)
  1. METRONIDAZOLE [Suspect]
     Indication: SMALL INTESTINAL BACTERIAL OVERGROWTH
     Dosage: 1 3 X DAY PO
     Route: 048
     Dates: start: 20130213, end: 20130225

REACTIONS (9)
  - Urticaria [None]
  - Pruritus [None]
  - Oral discomfort [None]
  - Fatigue [None]
  - Confusional state [None]
  - Swollen tongue [None]
  - Tongue discolouration [None]
  - Candida infection [None]
  - Unevaluable event [None]
